APPROVED DRUG PRODUCT: OSELTAMIVIR PHOSPHATE
Active Ingredient: OSELTAMIVIR PHOSPHATE
Strength: EQ 30MG BASE
Dosage Form/Route: CAPSULE;ORAL
Application: A213437 | Product #001 | TE Code: AB
Applicant: UPSHER SMITH LABORATORIES LLC
Approved: Jan 22, 2026 | RLD: No | RS: No | Type: RX